FAERS Safety Report 7760333-8 (Version None)
Quarter: 2011Q3

REPORT INFORMATION
  Report Type: 
  Country: None (occurrence: None)
  Receive Date: 20110919
  Receipt Date: 20110902
  Transmission Date: 20111222
  Serious: No
  Sender: FDA-Public Use
  Company Number: US-B.I. PHARMACEUTICALS,INC./RIDGEFIELD-2011-BP-05446BP

PATIENT
  Sex: Female

DRUGS (12)
  1. CYCLOBENZAPRINE [Concomitant]
     Indication: RHEUMATOID ARTHRITIS
     Dosage: 10 MG
     Route: 048
  2. ORPHENADRINE CITRATE [Concomitant]
     Indication: RHEUMATOID ARTHRITIS
     Dosage: 100 MG
     Route: 048
  3. COZAAR [Concomitant]
     Indication: HYPERTENSION
     Dosage: 100 MG
     Route: 048
  4. NORTRIPTYLINE HCL [Concomitant]
     Indication: DEPRESSION
     Dosage: 20 MG
     Route: 048
  5. METFORMIN HCL [Concomitant]
     Indication: DIABETES MELLITUS
     Dosage: 2000 MG
     Route: 048
  6. OMEPRAZOLE [Concomitant]
     Indication: GASTROOESOPHAGEAL REFLUX DISEASE
     Route: 048
  7. VIT D [Concomitant]
     Indication: SUPPLEMENTATION THERAPY
     Dosage: 50000 U
     Route: 048
  8. CRESTOR [Concomitant]
     Indication: BLOOD CHOLESTEROL INCREASED
     Dosage: 80 MG
     Route: 048
  9. SOTALOL HCL [Concomitant]
     Indication: ATRIAL FIBRILLATION
     Dosage: 80 MG
     Route: 048
  10. HYDROCODONE [Concomitant]
     Indication: RHEUMATOID ARTHRITIS
     Route: 048
  11. PRADAXA [Suspect]
     Indication: ATRIAL FIBRILLATION
     Dosage: 300 MG
     Route: 048
     Dates: start: 20110117, end: 20110401
  12. LANTUS [Concomitant]
     Indication: DIABETES MELLITUS
     Dosage: 50 U
     Route: 048

REACTIONS (8)
  - OESOPHAGEAL DISORDER [None]
  - OROPHARYNGEAL PAIN [None]
  - WEIGHT DECREASED [None]
  - PYREXIA [None]
  - CANDIDIASIS [None]
  - ORAL CANDIDIASIS [None]
  - OESOPHAGEAL CANDIDIASIS [None]
  - STOMATITIS [None]
